FAERS Safety Report 4803673-4 (Version None)
Quarter: 2005Q4

REPORT INFORMATION
  Report Type: 
  Country: None (occurrence: None)
  Receive Date: 20051017
  Receipt Date: 20050726
  Transmission Date: 20060501
  Serious: Yes (Other)
  Sender: FDA-Public Use
  Company Number: HQWYE645801AUG05

PATIENT
  Age: 74 Year
  Sex: Female
  Weight: 72.64 kg

DRUGS (9)
  1. ALAVERT [Suspect]
     Indication: HEADACHE
     Dosage: 1 TABLET 1X PER 1 DAY, ORAL
     Route: 048
     Dates: start: 20050701, end: 20050701
  2. ALAVERT [Suspect]
     Indication: POSTNASAL DRIP
     Dosage: 1 TABLET 1X PER 1 DAY, ORAL
     Route: 048
     Dates: start: 20050701, end: 20050701
  3. ALAVERT [Suspect]
     Indication: RHINORRHOEA
     Dosage: 1 TABLET 1X PER 1 DAY, ORAL
     Route: 048
     Dates: start: 20050701, end: 20050701
  4. CALCIUM (CALCIUM) [Concomitant]
  5. VITAMIN E [Concomitant]
  6. VITAMIN C (ASCORBIC ACID) [Concomitant]
  7. TOPROL-XL [Concomitant]
  8. DILAUDID [Concomitant]
  9. TYLENOL [Concomitant]

REACTIONS (1)
  - GLOSSODYNIA [None]
